FAERS Safety Report 19880101 (Version 3)
Quarter: 2021Q4

REPORT INFORMATION
  Report Type: Report from Study
  Country: ES (occurrence: None)
  Receive Date: 20210924
  Receipt Date: 20211215
  Transmission Date: 20220304
  Serious: Yes (Death)
  Sender: FDA-Public Use
  Company Number: ES-ROCHE-2910017

PATIENT

DRUGS (25)
  1. TOCILIZUMAB [Suspect]
     Active Substance: TOCILIZUMAB
     Indication: COVID-19 pneumonia
     Dosage: TOTAL DOSE 500 MG
     Route: 065
     Dates: start: 20200425
  2. PANTOPRAZOLE [Concomitant]
     Active Substance: PANTOPRAZOLE
     Dates: start: 20200420, end: 20200505
  3. METOCLOPRAMIDE HYDROCHLORIDE [Concomitant]
     Active Substance: METOCLOPRAMIDE HYDROCHLORIDE
     Indication: Vomiting
     Dates: start: 20200430, end: 20200505
  4. METOCLOPRAMIDE HYDROCHLORIDE [Concomitant]
     Active Substance: METOCLOPRAMIDE HYDROCHLORIDE
     Indication: Prophylaxis
  5. INSULIN NOS [Concomitant]
     Active Substance: INSULIN NOS
     Dates: start: 20200425, end: 20200505
  6. ENOXAPARIN [Concomitant]
     Active Substance: ENOXAPARIN
     Dates: start: 20200418, end: 20200505
  7. NOREPINEPHRINE\NOREPINEPHRINE BITARTRATE [Concomitant]
     Active Substance: NOREPINEPHRINE\NOREPINEPHRINE BITARTRATE
     Dates: start: 20200426, end: 20200528
  8. FUROSEMIDE [Concomitant]
     Active Substance: FUROSEMIDE
     Dates: start: 20200426, end: 20200503
  9. METHYLPREDNISOLONE [Concomitant]
     Active Substance: METHYLPREDNISOLONE
     Dates: start: 20200425, end: 20200505
  10. MEROPENEM [Concomitant]
     Active Substance: MEROPENEM
     Dates: start: 20200425, end: 20200426
  11. CEFTOLOZANE [Concomitant]
     Active Substance: CEFTOLOZANE
     Dates: start: 20200426, end: 20200505
  12. AZITHROMYCIN [Concomitant]
     Active Substance: AZITHROMYCIN
     Indication: COVID-19 pneumonia
     Dates: start: 20200418, end: 20200425
  13. VANCOMYCIN [Concomitant]
     Active Substance: VANCOMYCIN
     Dates: start: 20200426, end: 20200505
  14. LINEZOLID [Concomitant]
     Active Substance: LINEZOLID
     Dates: start: 20200425, end: 20200426
  15. AMPHOTERICIN B [Concomitant]
     Active Substance: AMPHOTERICIN B
     Dates: start: 20200426, end: 20200505
  16. ANAKINRA [Concomitant]
     Active Substance: ANAKINRA
     Indication: Pulmonary fibrosis
     Dates: start: 20200426, end: 20200505
  17. CISATRACURIO [Concomitant]
     Dates: start: 20200425, end: 20200429
  18. REMIFENTANIL [Concomitant]
     Active Substance: REMIFENTANIL
     Indication: Sedation
     Dates: start: 20200425, end: 20200429
  19. PROPOFOL [Concomitant]
     Active Substance: PROPOFOL
     Indication: Sedation
     Dates: start: 20200425, end: 20200505
  20. MORPHINE [Concomitant]
     Active Substance: MORPHINE
     Indication: Sedation
     Dates: start: 20200429, end: 20200505
  21. METAMIZOLE [Concomitant]
     Active Substance: METAMIZOLE
     Indication: Pain
     Dates: start: 20200418, end: 20200505
  22. ACETAMINOPHEN [Concomitant]
     Active Substance: ACETAMINOPHEN
     Indication: Pain
     Dates: start: 20200418, end: 20200529
  23. ALBUTEROL [Concomitant]
     Active Substance: ALBUTEROL
     Indication: Dyspnoea
     Dates: start: 20200426, end: 20200502
  24. ALBUTEROL [Concomitant]
     Active Substance: ALBUTEROL
     Indication: Prophylaxis
  25. ACETYLCYSTEINE [Concomitant]
     Active Substance: ACETYLCYSTEINE
     Dates: start: 20200425, end: 20200505

REACTIONS (1)
  - Acute respiratory distress syndrome [Fatal]

NARRATIVE: CASE EVENT DATE: 20200425
